FAERS Safety Report 19731361 (Version 1)
Quarter: 2021Q3

REPORT INFORMATION
  Report Type: Spontaneous
  Country: US (occurrence: US)
  Receive Date: 20210820
  Receipt Date: 20210820
  Transmission Date: 20211014
  Serious: No
  Sender: FDA-Public Use
  Company Number: None

PATIENT
  Sex: Female

DRUGS (3)
  1. VERZENIO [Suspect]
     Active Substance: ABEMACICLIB
     Indication: METASTASIS
     Route: 048
     Dates: start: 202011, end: 202105
  2. VERZENIO [Suspect]
     Active Substance: ABEMACICLIB
     Indication: BONE CANCER
     Route: 048
     Dates: start: 202011, end: 202105
  3. VERZENIO [Suspect]
     Active Substance: ABEMACICLIB
     Indication: BREAST CANCER FEMALE
     Route: 048
     Dates: start: 202011, end: 202105

REACTIONS (1)
  - Therapy non-responder [None]
